FAERS Safety Report 4668235-0 (Version None)
Quarter: 2005Q2

REPORT INFORMATION
  Report Type: 
  Country: None (occurrence: None)
  Receive Date: 20050523
  Receipt Date: 20050224
  Transmission Date: 20051028
  Serious: Yes (Hospitalization, Disabling, Other)
  Sender: FDA-Public Use
  Company Number: PHEH2005US02464

PATIENT
  Age: 63 Year
  Sex: Male

DRUGS (4)
  1. ZOMETA [Suspect]
     Indication: HYPERCALCAEMIA OF MALIGNANCY
     Dosage: 4 MG, QMO
     Dates: start: 20021201, end: 20031231
  2. LUPRON [Concomitant]
  3. CASODEX [Concomitant]
  4. ZOLADEX [Concomitant]

REACTIONS (5)
  - ASEPTIC NECROSIS BONE [None]
  - DENTAL OPERATION [None]
  - IMPAIRED HEALING [None]
  - JAW DISORDER [None]
  - ORAL PAIN [None]
